FAERS Safety Report 14008780 (Version 1)
Quarter: 2017Q3

REPORT INFORMATION
  Report Type: Spontaneous
  Country: ES (occurrence: ES)
  Receive Date: 20170925
  Receipt Date: 20170925
  Transmission Date: 20171128
  Serious: Yes (Death, Other)
  Sender: FDA-Public Use
  Company Number: ES-CELGENEUS-ESP-2016030406

PATIENT

DRUGS (2)
  1. GEMCITABINE [Concomitant]
     Active Substance: GEMCITABINE\GEMCITABINE HYDROCHLORIDE
     Indication: ADENOCARCINOMA PANCREAS
     Route: 065
  2. ABRAXANE [Suspect]
     Active Substance: PACLITAXEL
     Indication: ADENOCARCINOMA PANCREAS
     Route: 041

REACTIONS (16)
  - Rash [Unknown]
  - Post procedural complication [Fatal]
  - Vomiting [Unknown]
  - Asthenia [Unknown]
  - Pyrexia [Unknown]
  - Diarrhoea [Unknown]
  - Neutropenia [Recovered/Resolved]
  - Alopecia [Unknown]
  - Disease progression [Unknown]
  - Cholangitis [Recovered/Resolved]
  - Thrombocytopenia [Recovered/Resolved]
  - Constipation [Unknown]
  - Post procedural haemorrhage [Fatal]
  - Hypertransaminasaemia [Recovered/Resolved]
  - Anaemia [Unknown]
  - Peripheral sensory neuropathy [Unknown]
